FAERS Safety Report 5236557-0 (Version None)
Quarter: 2007Q1

REPORT INFORMATION
  Report Type: 
  Country: None (occurrence: None)
  Receive Date: 20070208
  Receipt Date: 20070201
  Transmission Date: 20070707
  Serious: Yes (Death)
  Sender: FDA-Public Use
  Company Number: 2007-00466

PATIENT
  Age: 65 Year

DRUGS (4)
  1. METHOCARBAMOL [Suspect]
  2. ACETAMINOPHEN [Suspect]
     Dosage: UNK
  3. ASPIRIN [Suspect]
     Dosage: UNK
  4. DULOXETINE [Suspect]
     Dosage: UNK

REACTIONS (1)
  - DEATH [None]
